FAERS Safety Report 24911842 (Version 5)
Quarter: 2025Q1

REPORT INFORMATION
  Report Type: Spontaneous
  Country: US (occurrence: US)
  Receive Date: 20250131
  Receipt Date: 20250225
  Transmission Date: 20250409
  Serious: No
  Sender: PFIZER
  Company Number: US-PFIZER INC-202400105803

PATIENT
  Age: 67 Year
  Sex: Female

DRUGS (3)
  1. LITFULO [Suspect]
     Active Substance: RITLECITINIB TOSYLATE
     Indication: Alopecia
     Dates: end: 202402
  2. LITFULO [Suspect]
     Active Substance: RITLECITINIB TOSYLATE
     Dates: start: 2024, end: 202412
  3. LITFULO [Suspect]
     Active Substance: RITLECITINIB TOSYLATE
     Dosage: 50 MG, 1X/DAY
     Dates: start: 20250212

REACTIONS (2)
  - Self-injurious ideation [Unknown]
  - Migraine [Unknown]
